FAERS Safety Report 11142397 (Version 1)
Quarter: 2015Q2

REPORT INFORMATION
  Report Type: Spontaneous
  Country: US (occurrence: None)
  Receive Date: 20150526
  Receipt Date: 20150526
  Transmission Date: 20150821
  Serious: Yes (Other)
  Sender: FDA-Public Use
  Company Number: None

PATIENT
  Age: 3 Year
  Sex: Female
  Weight: 16.78 kg

DRUGS (2)
  1. COPPERTONE KIDS SUNSCREEN SPF 70 [Suspect]
     Active Substance: AVOBENZONE\HOMOSALATE\OCTISALATE\OCTOCRYLENE\OXYBENZONE
  2. CLARITIN [Concomitant]
     Active Substance: LORATADINE

REACTIONS (5)
  - Skin exfoliation [None]
  - Drug hypersensitivity [None]
  - Application site erythema [None]
  - Application site pruritus [None]
  - Swelling [None]

NARRATIVE: CASE EVENT DATE: 20150517
